FAERS Safety Report 13371962 (Version 4)
Quarter: 2017Q4

REPORT INFORMATION
  Report Type: Report from Study
  Country: None (occurrence: US)
  Receive Date: 20170326
  Receipt Date: 20171129
  Transmission Date: 20180320
  Serious: Yes (Other)
  Sender: FDA-Public Use
  Company Number: US-ABBVIE-17K-163-1918707-00

PATIENT
  Age: 61 Year
  Sex: Female

DRUGS (2)
  1. HUMIRA [Suspect]
     Active Substance: ADALIMUMAB
     Indication: PSORIASIS
     Route: 058
  2. HUMIRA [Suspect]
     Active Substance: ADALIMUMAB
     Indication: PSORIATIC ARTHROPATHY
     Route: 058
     Dates: start: 2013

REACTIONS (9)
  - Psoriasis [Recovered/Resolved]
  - Adverse drug reaction [Not Recovered/Not Resolved]
  - Medical device site joint pain [Not Recovered/Not Resolved]
  - Knee arthroplasty [Recovered/Resolved]
  - Ligament sprain [Not Recovered/Not Resolved]
  - Injection site infection [Recovered/Resolved]
  - Bacterial infection [Recovered/Resolved]
  - Intracranial aneurysm [Recovered/Resolved]
  - Carpal tunnel syndrome [Unknown]

NARRATIVE: CASE EVENT DATE: 201305
